FAERS Safety Report 6517701-1 (Version None)
Quarter: 2009Q4

REPORT INFORMATION
  Report Type: 
  Country: None (occurrence: None)
  Receive Date: 20091224
  Receipt Date: 20091215
  Transmission Date: 20100525
  Serious: Yes (Hospitalization)
  Sender: FDA-Public Use
  Company Number: JP-ASTRAZENECA-2009SE33043

PATIENT
  Age: 27 Year
  Sex: Female
  Weight: 62 kg

DRUGS (8)
  1. SEROQUEL [Suspect]
     Indication: SCHIZOPHRENIA
     Route: 048
     Dates: end: 20060108
  2. IMPROMEN [Suspect]
     Indication: SCHIZOPHRENIA
     Route: 048
     Dates: end: 20060108
  3. NEULEPTIL [Suspect]
     Indication: SCHIZOPHRENIA
     Route: 048
     Dates: end: 20060108
  4. RISPERDAL [Suspect]
     Indication: SCHIZOPHRENIA
     Route: 048
     Dates: end: 20060108
  5. RISPERDAL [Suspect]
     Route: 048
     Dates: start: 20070122
  6. LEVOTOMIN [Concomitant]
     Dates: end: 20060110
  7. VEGETAMIN A [Concomitant]
     Indication: SCHIZOPHRENIA
     Dates: end: 20060110
  8. TINELAC [Concomitant]
     Indication: CONSTIPATION
     Dates: end: 20060110

REACTIONS (3)
  - LEUKOPENIA [None]
  - PYREXIA [None]
  - THROMBOCYTOPENIA [None]
